FAERS Safety Report 14487642 (Version 1)
Quarter: 2018Q1

REPORT INFORMATION
  Report Type: Spontaneous
  Country: DE (occurrence: DE)
  Receive Date: 20180205
  Receipt Date: 20180205
  Transmission Date: 20180509
  Serious: Yes (Hospitalization, Other)
  Sender: FDA-Public Use
  Company Number: DE-JNJFOC-20180203145

PATIENT
  Age: 46 Year
  Sex: Female
  Weight: 55 kg

DRUGS (9)
  1. MCP [Suspect]
     Active Substance: METOCLOPRAMIDE HYDROCHLORIDE
     Indication: POSTOPERATIVE CARE
     Route: 065
     Dates: start: 20161102, end: 20161214
  2. CLINDAMYCIN. [Concomitant]
     Active Substance: CLINDAMYCIN
     Indication: STAPHYLOCOCCAL INFECTION
     Route: 065
     Dates: start: 20161202, end: 20161214
  3. PANTOZOL [Suspect]
     Active Substance: PANTOPRAZOLE SODIUM
     Indication: POSTOPERATIVE CARE
     Route: 065
     Dates: start: 20161102, end: 20161214
  4. NOVALGIN (METAMIZOLE SODIUM) [Suspect]
     Active Substance: METAMIZOLE SODIUM
     Indication: POSTOPERATIVE CARE
     Route: 065
     Dates: start: 20161102, end: 20161214
  5. TILIDINE [Suspect]
     Active Substance: TILIDINE
     Indication: POSTOPERATIVE CARE
     Route: 065
     Dates: start: 20161102, end: 20161214
  6. TRAMAL [Suspect]
     Active Substance: TRAMADOL
     Indication: POSTOPERATIVE CARE
     Route: 065
     Dates: start: 20161102, end: 20161214
  7. MONO-EMBOLEX [Suspect]
     Active Substance: CERTOPARIN SODIUM
     Indication: POSTOPERATIVE CARE
     Route: 065
     Dates: start: 20161102, end: 20161214
  8. METRONIDAZOLE. [Concomitant]
     Active Substance: METRONIDAZOLE
     Indication: GASTROENTERITIS
     Route: 065
     Dates: start: 20161202, end: 20161214
  9. CEFIXIME. [Concomitant]
     Active Substance: CEFIXIME
     Indication: STAPHYLOCOCCAL INFECTION
     Route: 065
     Dates: start: 20161201

REACTIONS (1)
  - Hepatic necrosis [Recovered/Resolved]

NARRATIVE: CASE EVENT DATE: 20161219
